FAERS Safety Report 15810576 (Version 1)
Quarter: 2019Q1

REPORT INFORMATION
  Report Type: Spontaneous
  Country: US (occurrence: US)
  Receive Date: 20190111
  Receipt Date: 20190111
  Transmission Date: 20190417
  Serious: No
  Sender: FDA-Public Use
  Company Number: US-ROCHE-2170391

PATIENT
  Sex: Male

DRUGS (4)
  1. ENBREL [Concomitant]
     Active Substance: ETANERCEPT
  2. METHOTREXATE. [Concomitant]
     Active Substance: METHOTREXATE
     Route: 048
     Dates: start: 1990
  3. REMICADE [Concomitant]
     Active Substance: INFLIXIMAB
  4. RITUXAN [Suspect]
     Active Substance: RITUXIMAB
     Indication: PRODUCT USED FOR UNKNOWN INDICATION
     Route: 065
     Dates: start: 2014, end: 2017

REACTIONS (1)
  - Therapeutic response decreased [Unknown]
